FAERS Safety Report 9147581 (Version 1)
Quarter: 2013Q1

REPORT INFORMATION
  Report Type: Spontaneous
  Country: AU (occurrence: AU)
  Receive Date: 20130307
  Receipt Date: 20130307
  Transmission Date: 20140127
  Serious: Yes (Hospitalization)
  Sender: FDA-Public Use
  Company Number: AU-009507513-1303AUS001541

PATIENT
  Age: 31 Year
  Sex: Male
  Weight: 85 kg

DRUGS (3)
  1. BOCEPREVIR [Suspect]
     Dosage: UNK
     Dates: start: 20120630, end: 20121215
  2. RIBAVIRIN [Suspect]
  3. PEGASYS [Suspect]

REACTIONS (1)
  - Deep vein thrombosis [Unknown]
